FAERS Safety Report 7071832-9 (Version None)
Quarter: 2010Q4

REPORT INFORMATION
  Report Type: 
  Country: None (occurrence: None)
  Receive Date: 20101029
  Receipt Date: 20091130
  Transmission Date: 20110411
  Serious: No
  Sender: FDA-Public Use
  Company Number: A0813608A

PATIENT
  Age: 62 Year
  Sex: Female

DRUGS (5)
  1. ADVAIR DISKUS 100/50 [Suspect]
     Indication: ASTHMA
     Dosage: 1PUFF PER DAY
     Route: 055
     Dates: start: 19950101
  2. SINGULAIR [Concomitant]
  3. WATER PILL [Concomitant]
  4. MAXI HAIR [Concomitant]
  5. ACID REFLUX MED. [Concomitant]

REACTIONS (3)
  - BLUNTED AFFECT [None]
  - COUGH [None]
  - PRODUCT QUALITY ISSUE [None]
